FAERS Safety Report 6133208-8 (Version None)
Quarter: 2009Q1

REPORT INFORMATION
  Report Type: 
  Country: None (occurrence: None)
  Receive Date: 20090325
  Receipt Date: 20090325
  Transmission Date: 20090719
  Serious: Yes (Other)
  Sender: FDA-Public Use
  Company Number: None

PATIENT
  Age: 66 Year
  Sex: Male
  Weight: 74.8435 kg

DRUGS (1)
  1. NASONEX [Suspect]
     Indication: RHINITIS PERENNIAL
     Dosage: 50 MCG/NOSTRIL QD NASAL
     Route: 045
     Dates: start: 20090215, end: 20090324

REACTIONS (1)
  - ANOSMIA [None]
